FAERS Safety Report 17548094 (Version 2)
Quarter: 2020Q1

REPORT INFORMATION
  Report Type: Spontaneous
  Country: US (occurrence: US)
  Receive Date: 20200317
  Receipt Date: 20200319
  Transmission Date: 20200409
  Serious: Yes (Other)
  Sender: FDA-Public Use
  Company Number: US-ABBVIE-20K-163-3322429-00

PATIENT
  Age: 64 Year
  Sex: Female

DRUGS (1)
  1. MAVYRET [Suspect]
     Active Substance: GLECAPREVIR\PIBRENTASVIR
     Indication: PRODUCT USED FOR UNKNOWN INDICATION
     Route: 048

REACTIONS (7)
  - Dysarthria [Unknown]
  - Vomiting [Unknown]
  - Dementia Alzheimer^s type [Unknown]
  - Nausea [Unknown]
  - Fatigue [Unknown]
  - Syncope [Unknown]
  - Tremor [Unknown]

NARRATIVE: CASE EVENT DATE: 20191029
